FAERS Safety Report 5981731-9 (Version None)
Quarter: 2008Q4

REPORT INFORMATION
  Report Type: 
  Country: None (occurrence: None)
  Receive Date: 20081205
  Receipt Date: 20081115
  Transmission Date: 20090506
  Serious: No
  Sender: FDA-Public Use
  Company Number: US-B.I. PHARMACEUTICALS,INC./RIDGEFIELD-2008-BP-17398BP

PATIENT
  Sex: Male

DRUGS (1)
  1. ZANTAC [Suspect]
     Indication: GASTRITIS
     Dosage: 150MG
     Route: 048
     Dates: start: 20081101, end: 20081103

REACTIONS (1)
  - ABDOMINAL PAIN UPPER [None]
